FAERS Safety Report 15299409 (Version 2)
Quarter: 2018Q3

REPORT INFORMATION
  Report Type: Spontaneous
  Country: DE (occurrence: DE)
  Receive Date: 20180821
  Receipt Date: 20180928
  Transmission Date: 20181010
  Serious: Yes (Other)
  Sender: FDA-Public Use
  Company Number: DE-TEVA-2018-DE-943781

PATIENT
  Age: 46 Year
  Sex: Female

DRUGS (4)
  1. PACLITAXEL. [Suspect]
     Active Substance: PACLITAXEL
     Indication: BREAST CANCER
     Dosage: 90 MG/M2, DAY 1,8,15 EVERY 4 WEEKS
     Route: 065
     Dates: start: 2016, end: 2017
  2. CAPECITABINE. [Suspect]
     Active Substance: CAPECITABINE
     Indication: BREAST CANCER
     Dosage: 2G / M2 DAY 1?14, EVERY 3 WEEKS
     Route: 065
     Dates: start: 2017
  3. BEVACIZUMAB. [Suspect]
     Active Substance: BEVACIZUMAB
     Indication: BREAST CANCER
     Dosage: 10 MG/M2, EVERY 2 WEEKS
     Route: 065
     Dates: start: 2016, end: 2017
  4. DENOSUMAB [Concomitant]
     Active Substance: DENOSUMAB
     Indication: BREAST CANCER
     Route: 058

REACTIONS (5)
  - Musculoskeletal pain [Unknown]
  - Malignant neoplasm progression [Unknown]
  - Brachiocephalic vein thrombosis [Unknown]
  - Chest pain [Unknown]
  - Peripheral swelling [Unknown]

NARRATIVE: CASE EVENT DATE: 201701
